FAERS Safety Report 14311379 (Version 1)
Quarter: 2017Q4

REPORT INFORMATION
  Report Type: Spontaneous
  Country: US (occurrence: US)
  Receive Date: 20171221
  Receipt Date: 20171221
  Transmission Date: 20180321
  Serious: No
  Sender: FDA-Public Use
  Company Number: US-NOVEN PHARMACEUTICALS, INC.-US2017001022

PATIENT

DRUGS (2)
  1. CRINONE [Concomitant]
     Active Substance: PROGESTERONE
  2. MINIVELLE [Suspect]
     Active Substance: ESTRADIOL
     Indication: INFERTILITY
     Dosage: 0.4 MG (USING 4 PATCHES OF 0.1 MG), FOR EVERY 2 OR 3 DAYS
     Route: 062
     Dates: start: 2017

REACTIONS (5)
  - No adverse event [Unknown]
  - Product packaging quantity issue [Unknown]
  - Wrong technique in product usage process [Unknown]
  - Off label use [Unknown]
  - Overdose [Unknown]

NARRATIVE: CASE EVENT DATE: 2017
